FAERS Safety Report 4751037-4 (Version None)
Quarter: 2005Q3

REPORT INFORMATION
  Report Type: 
  Country: None (occurrence: None)
  Receive Date: 20050822
  Receipt Date: 20050808
  Transmission Date: 20060218
  Serious: Yes (Hospitalization)
  Sender: FDA-Public Use
  Company Number: FABR-11198

PATIENT
  Age: 54 Year
  Sex: Male
  Weight: 76.6579 kg

DRUGS (9)
  1. FABRAZYME [Suspect]
     Indication: FABRY'S DISEASE
     Dosage: 76.8 MG Q2WKS IV
     Route: 042
  2. LEVAQUIN [Concomitant]
  3. CLEOCIN [Concomitant]
  4. NEORAL [Concomitant]
  5. CELLCEPT [Concomitant]
  6. PREDNISONE TAB [Concomitant]
  7. LASIX [Concomitant]
  8. COUMADIN [Concomitant]
  9. LANOXIN [Concomitant]

REACTIONS (11)
  - CHILLS [None]
  - DYSPNOEA [None]
  - FALL [None]
  - HAEMATOMA [None]
  - HYPERHIDROSIS [None]
  - HYPOTENSION [None]
  - HYPOXIA [None]
  - OEDEMA PERIPHERAL [None]
  - PALLOR [None]
  - PYREXIA [None]
  - TACHYCARDIA [None]
